FAERS Safety Report 6407512-X (Version None)
Quarter: 2009Q4

REPORT INFORMATION
  Report Type: 
  Country: None (occurrence: None)
  Receive Date: 20091020
  Receipt Date: 20091001
  Transmission Date: 20100525
  Serious: Yes (Other)
  Sender: FDA-Public Use
  Company Number: US-BAYER-200934812NA

PATIENT
  Age: 0 Hour
  Weight: 2.44 kg

DRUGS (1)
  1. MAGNEVIST [Suspect]
     Indication: DRUG USE FOR UNKNOWN INDICATION
     Dosage: MOTHER'S DOSE:  16ML ON 26-SEP-2008
     Route: 064

REACTIONS (1)
  - UMBILICAL CORD AROUND NECK [None]
